FAERS Safety Report 15138635 (Version 1)
Quarter: 2018Q3

REPORT INFORMATION
  Report Type: Report from Study
  Country: GB (occurrence: GB)
  Receive Date: 20180713
  Receipt Date: 20180713
  Transmission Date: 20181010
  Serious: Yes (Other)
  Sender: FDA-Public Use
  Company Number: GB-ROCHE-2152475

PATIENT
  Age: 55 Year
  Sex: Male

DRUGS (1)
  1. BEVACIZUMAB. [Suspect]
     Active Substance: BEVACIZUMAB
     Indication: TRACTIONAL RETINAL DETACHMENT
     Route: 050

REACTIONS (1)
  - Vitreous haemorrhage [Unknown]
